FAERS Safety Report 22287681 (Version 2)
Quarter: 2023Q2

REPORT INFORMATION
  Report Type: Spontaneous
  Country: FR (occurrence: FR)
  Receive Date: 20230505
  Receipt Date: 20230515
  Transmission Date: 20230722
  Serious: Yes (Other)
  Sender: FDA-Public Use
  Company Number: FR-PFIZER INC-202300162039

PATIENT
  Sex: Male

DRUGS (4)
  1. ATORVASTATIN [Interacting]
     Active Substance: ATORVASTATIN
     Indication: Immunosuppressant drug therapy
     Dosage: UNK
     Route: 065
  2. AMIODARONE [Interacting]
     Active Substance: AMIODARONE
     Indication: Immunosuppressant drug therapy
     Dosage: UNK
     Route: 065
  3. FLUINDIONE [Interacting]
     Active Substance: FLUINDIONE
     Indication: Immunosuppressant drug therapy
     Dosage: UNK
     Route: 065
  4. PAXLOVID [Interacting]
     Active Substance: NIRMATRELVIR\RITONAVIR
     Indication: COVID-19 treatment
     Dosage: UNK
     Route: 048

REACTIONS (4)
  - International normalised ratio increased [Unknown]
  - Rhabdomyolysis [Unknown]
  - Drug interaction [Unknown]
  - Contraindicated product administered [Unknown]
